FAERS Safety Report 14643099 (Version 5)
Quarter: 2018Q4

REPORT INFORMATION
  Report Type: Report from Study
  Country: US (occurrence: US)
  Receive Date: 20180315
  Receipt Date: 20181011
  Transmission Date: 20190204
  Serious: Yes (Hospitalization)
  Sender: FDA-Public Use
  Company Number: US-BRISTOL-MYERS SQUIBB COMPANY-BMS-2018-024605

PATIENT
  Age: 70 Year
  Sex: Male
  Weight: 91.5 kg

DRUGS (16)
  1. ACETAMINOPHEN. [Concomitant]
     Active Substance: ACETAMINOPHEN
     Indication: PAIN
     Dosage: 1000 MG, PRN
     Route: 048
  2. EZETIMIBE. [Concomitant]
     Active Substance: EZETIMIBE
     Indication: BLOOD CHOLESTEROL
     Dosage: 10 MG, QD
     Route: 048
  3. NITROGLYCERIN. [Concomitant]
     Active Substance: NITROGLYCERIN
     Indication: NAUSEA
     Dosage: 0.4 MG, PRN
     Route: 048
     Dates: start: 20160920
  4. CEFTRIAXONE. [Concomitant]
     Active Substance: CEFTRIAXONE
     Indication: PROPHYLAXIS
     Dosage: 1 G, QD
     Route: 042
     Dates: start: 20180306, end: 20180306
  5. PLAVIX [Concomitant]
     Active Substance: CLOPIDOGREL BISULFATE
     Indication: MYOCARDIAL INFARCTION
     Dosage: 75 MG, QD
     Route: 048
     Dates: start: 20170207
  6. OMEPRAZOLE. [Concomitant]
     Active Substance: OMEPRAZOLE
     Indication: GASTROOESOPHAGEAL REFLUX DISEASE
     Dosage: 40 MG, BID
     Route: 048
     Dates: start: 20180213
  7. DEXAMETHASONE. [Concomitant]
     Active Substance: DEXAMETHASONE
     Indication: PREMEDICATION
     Dosage: 8 MG, BID
     Route: 048
     Dates: start: 20180207, end: 20180209
  8. IPILIMUMAB [Suspect]
     Active Substance: IPILIMUMAB
     Indication: SMALL CELL LUNG CANCER
     Dosage: 1 MG/KG, Q3WK
     Route: 042
     Dates: start: 20180228, end: 20180228
  9. VITAMIN D [Concomitant]
     Active Substance: CHOLECALCIFEROL
     Indication: ADVERSE EVENT
     Dosage: 1200 U, QD
     Route: 048
  10. NIVOLUMAB [Suspect]
     Active Substance: NIVOLUMAB
     Indication: SMALL CELL LUNG CANCER
     Dosage: 1 MG, Q3WK
     Route: 042
     Dates: start: 20180228, end: 20180228
  11. ROSUVASTATIN. [Concomitant]
     Active Substance: ROSUVASTATIN
     Indication: BLOOD CHOLESTEROL
     Dosage: 10 MG, PRN
     Route: 048
  12. ASPIRIN                            /00002701/ [Concomitant]
     Active Substance: ASPIRIN
     Indication: PAIN
     Dosage: 81 MG, PRN
     Route: 048
  13. VELMETIA [Concomitant]
     Active Substance: METFORMIN\SITAGLIPTIN
     Indication: DIABETES MELLITUS
     Dosage: 1 DF, BID
     Route: 048
     Dates: start: 20161114
  14. ROVALPITUZUMAB TESIRINE [Suspect]
     Active Substance: ROVALPITUZUMAB TESIRINE
     Indication: SMALL CELL LUNG CANCER
     Dosage: 0.3 MG, Q6WK
     Route: 042
     Dates: start: 20180208, end: 20180208
  15. LOPRESSOR [Concomitant]
     Active Substance: METOPROLOL TARTRATE
     Indication: HYPERTENSION
     Dosage: 50 MG, BID
     Route: 048
  16. OXYCODONE [Concomitant]
     Active Substance: OXYCODONE
     Indication: PAIN
     Dosage: 1 DF, PRN
     Route: 048
     Dates: start: 20171129

REACTIONS (3)
  - Rash maculo-papular [Recovered/Resolved]
  - Dehydration [Recovered/Resolved]
  - Fatigue [Not Recovered/Not Resolved]

NARRATIVE: CASE EVENT DATE: 20180306
